FAERS Safety Report 17752085 (Version 3)
Quarter: 2021Q2

REPORT INFORMATION
  Report Type: Spontaneous
  Country: US (occurrence: US)
  Receive Date: 20200506
  Receipt Date: 20210624
  Transmission Date: 20210716
  Serious: Yes (Hospitalization, Other)
  Sender: FDA-Public Use
  Company Number: US-GILEAD-2020-0464473

PATIENT
  Age: 48 Year
  Sex: Male
  Weight: 65.76 kg

DRUGS (53)
  1. TRAZODONE [Concomitant]
     Active Substance: TRAZODONE HYDROCHLORIDE
  2. HYDROCODONE BITARTRATE AND ACETAMINOPHEN [Concomitant]
     Active Substance: ACETAMINOPHEN\HYDROCODONE BITARTRATE
  3. CLONAZEPAM. [Concomitant]
     Active Substance: CLONAZEPAM
  4. DEXTROSE. [Concomitant]
     Active Substance: DEXTROSE
  5. MELATONIN [Concomitant]
     Active Substance: MELATONIN
  6. FENTANYL. [Concomitant]
     Active Substance: FENTANYL
  7. CITALOPRAM [Concomitant]
     Active Substance: CITALOPRAM HYDROBROMIDE
  8. THERA?M [Concomitant]
  9. VENLAFAXINE [Concomitant]
     Active Substance: VENLAFAXINE HYDROCHLORIDE
  10. DIPHENHYDRAMINE. [Concomitant]
     Active Substance: DIPHENHYDRAMINE
  11. ROBITUSSIN [DEXTROMETHORPHAN HYDROBROMIDE] [Concomitant]
     Active Substance: DEXTROMETHORPHAN HYDROBROMIDE
  12. BACTRIM [Concomitant]
     Active Substance: SULFAMETHOXAZOLE\TRIMETHOPRIM
  13. FLEET LAXATIVE [Concomitant]
  14. RITALIN [Concomitant]
     Active Substance: METHYLPHENIDATE HYDROCHLORIDE
  15. LEVOFLOXIN [Concomitant]
     Active Substance: LEVOFLOXACIN
  16. XYLOCAINE [Concomitant]
     Active Substance: LIDOCAINE HYDROCHLORIDE
  17. EPINEPHRINE HCL [Concomitant]
     Active Substance: EPINEPHRINE
  18. HEPARIN [Concomitant]
     Active Substance: HEPARIN SODIUM
  19. PENICILLIN NOS [Concomitant]
     Active Substance: PENICILLIN
  20. CELEXA [Concomitant]
     Active Substance: CITALOPRAM HYDROBROMIDE
  21. PAXIL [Concomitant]
     Active Substance: PAROXETINE HYDROCHLORIDE
  22. IOHEXOL [Concomitant]
     Active Substance: IOHEXOL
  23. LOMOTIL [LOPERAMIDE HYDROCHLORIDE] [Concomitant]
     Active Substance: LOPERAMIDE HYDROCHLORIDE
  24. VERSED [Concomitant]
     Active Substance: MIDAZOLAM HYDROCHLORIDE
  25. AMOXICILLIN. [Concomitant]
     Active Substance: AMOXICILLIN
  26. METHYLPREDNISOLONE. [Concomitant]
     Active Substance: METHYLPREDNISOLONE
  27. TIVICAY [Concomitant]
     Active Substance: DOLUTEGRAVIR SODIUM
  28. VASCEPA [Concomitant]
     Active Substance: ICOSAPENT ETHYL
  29. CORGARD [Concomitant]
     Active Substance: NADOLOL
  30. NORVASC [Concomitant]
     Active Substance: AMLODIPINE BESYLATE
  31. BENAZEPRIL [Concomitant]
     Active Substance: BENAZEPRIL HYDROCHLORIDE
  32. ZIAGEN [Concomitant]
     Active Substance: ABACAVIR SULFATE
  33. ANDROGEL [Concomitant]
     Active Substance: TESTOSTERONE
  34. DULOXETINE. [Concomitant]
     Active Substance: DULOXETINE
  35. STRIBILD [Suspect]
     Active Substance: COBICISTAT\ELVITEGRAVIR\EMTRICITABINE\TENOFOVIR DISOPROXIL FUMARATE
     Indication: HIV INFECTION
     Dosage: UNK
     Route: 048
     Dates: start: 20150206, end: 20150618
  36. ASPIRIN [ACETYLSALICYLIC ACID] [Concomitant]
     Active Substance: ASPIRIN
  37. CRESTOR [Concomitant]
     Active Substance: ROSUVASTATIN CALCIUM
  38. OMEPRAZOLE. [Concomitant]
     Active Substance: OMEPRAZOLE
  39. TRIUMEQ [Concomitant]
     Active Substance: ABACAVIR SULFATE\DOLUTEGRAVIR SODIUM\LAMIVUDINE
  40. TUMS [Concomitant]
     Active Substance: CALCIUM CARBONATE
  41. PROMETHAZINE [Concomitant]
     Active Substance: PROMETHAZINE HYDROCHLORIDE
  42. RISPERIDONE. [Concomitant]
     Active Substance: RISPERIDONE
  43. TRAMADOL. [Concomitant]
     Active Substance: TRAMADOL
  44. ZOFRAN [Concomitant]
     Active Substance: ONDANSETRON HYDROCHLORIDE
  45. ACETAMINOPHEN. [Concomitant]
     Active Substance: ACETAMINOPHEN
  46. PRAVASTATIN. [Concomitant]
     Active Substance: PRAVASTATIN
  47. VANCOMYCIN [Concomitant]
     Active Substance: VANCOMYCIN
  48. EPIVIR [Concomitant]
     Active Substance: LAMIVUDINE
  49. ATENOLOL. [Concomitant]
     Active Substance: ATENOLOL
  50. CLONIDINE. [Concomitant]
     Active Substance: CLONIDINE
  51. AMOXICILLIN;CLAVULANIC ACID [Concomitant]
     Active Substance: AMOXICILLIN\CLAVULANIC ACID
  52. IPRATROPIUM/ALBUTEROL [Concomitant]
     Active Substance: ALBUTEROL\IPRATROPIUM
  53. NITROSTAT [Concomitant]
     Active Substance: NITROGLYCERIN

REACTIONS (17)
  - Hyperparathyroidism secondary [Not Recovered/Not Resolved]
  - Hypertension [Unknown]
  - Chronic kidney disease [Not Recovered/Not Resolved]
  - Hyperkalaemia [Unknown]
  - Exercise tolerance decreased [Unknown]
  - Renal failure [Not Recovered/Not Resolved]
  - Acute kidney injury [Not Recovered/Not Resolved]
  - Renal tubular necrosis [Unknown]
  - Emotional distress [Unknown]
  - Hyperphosphataemia [Unknown]
  - Metabolic acidosis [Unknown]
  - Hyponatraemia [Unknown]
  - Nephropathy toxic [Unknown]
  - Nephrogenic anaemia [Unknown]
  - Pain [Unknown]
  - End stage renal disease [Not Recovered/Not Resolved]
  - Bone density decreased [Unknown]

NARRATIVE: CASE EVENT DATE: 20150415
